FAERS Safety Report 19470940 (Version 3)
Quarter: 2021Q3

REPORT INFORMATION
  Report Type: Spontaneous
  Country: PT (occurrence: PT)
  Receive Date: 20210628
  Receipt Date: 20210720
  Transmission Date: 20211014
  Serious: Yes (Death, Other)
  Sender: FDA-Public Use
  Company Number: PT-VERTEX PHARMACEUTICALS-2021-009561

PATIENT
  Age: 25 Year
  Sex: Female

DRUGS (4)
  1. PANCREATIN [Concomitant]
     Active Substance: PANCRELIPASE
     Dosage: 30/DAY
  2. PULMOZYME [Concomitant]
     Active Substance: DORNASE ALFA
  3. PFIZER?BIONTECH COVID?19 VACCINE [Concomitant]
     Active Substance: TOZINAMERAN
     Dosage: UNK
     Dates: start: 20210522, end: 20210522
  4. KAFTRIO [Suspect]
     Active Substance: ELEXACAFTOR\IVACAFTOR\TEZACAFTOR
     Indication: CYSTIC FIBROSIS
     Dosage: UNK
     Route: 048
     Dates: start: 20210311, end: 20210618

REACTIONS (12)
  - Paraplegia [Not Recovered/Not Resolved]
  - Rash [Recovered/Resolved]
  - Pneumothorax [Unknown]
  - Depersonalisation/derealisation disorder [Unknown]
  - Dissociation [Unknown]
  - Intracranial pressure increased [Unknown]
  - Coma [Recovered/Resolved]
  - Feeling abnormal [Unknown]
  - Neck pain [Unknown]
  - Brain oedema [Fatal]
  - Respiratory failure [Unknown]
  - Muscle necrosis [Not Recovered/Not Resolved]

NARRATIVE: CASE EVENT DATE: 2021
